FAERS Safety Report 14012940 (Version 1)
Quarter: 2017Q3

REPORT INFORMATION
  Report Type: Spontaneous
  Country: US (occurrence: US)
  Receive Date: 20170926
  Receipt Date: 20170926
  Transmission Date: 20171128
  Serious: No
  Sender: FDA-Public Use
  Company Number: US-GLAXOSMITHKLINE-US2017147701

PATIENT
  Age: 71 Year
  Sex: Female
  Weight: 95.24 kg

DRUGS (1)
  1. EQUATE NICOTINE [Suspect]
     Active Substance: NICOTINE
     Indication: SMOKING CESSATION THERAPY
     Dosage: 21 MG, UNK
     Dates: start: 20170901

REACTIONS (2)
  - Nicotine dependence [Unknown]
  - Expired product administered [Unknown]

NARRATIVE: CASE EVENT DATE: 20170921
